FAERS Safety Report 21190917 (Version 1)
Quarter: 2022Q3

REPORT INFORMATION
  Report Type: Spontaneous
  Country: US (occurrence: US)
  Receive Date: 20220809
  Receipt Date: 20220809
  Transmission Date: 20221026
  Serious: Yes (Hospitalization, Other)
  Sender: FDA-Public Use
  Company Number: US-BRISTOL-MYERS SQUIBB COMPANY-2022-084250

PATIENT
  Age: 12 Year
  Sex: Male

DRUGS (1)
  1. NIVOLUMAB [Suspect]
     Active Substance: NIVOLUMAB
     Indication: Naevoid melanoma
     Dosage: INFUSIONS. DOSE: 3MG/KG
     Route: 065

REACTIONS (1)
  - Pemphigoid [Recovered/Resolved]
